FAERS Safety Report 18610880 (Version 1)
Quarter: 2020Q4

REPORT INFORMATION
  Report Type: Spontaneous
  Country: US (occurrence: US)
  Receive Date: 20201212
  Receipt Date: 20201212
  Transmission Date: 20210114
  Serious: No
  Sender: FDA-Public Use
  Company Number: None

PATIENT
  Age: 58 Year
  Sex: Female
  Weight: 110.7 kg

DRUGS (3)
  1. ZYRTEC [Concomitant]
     Active Substance: CETIRIZINE HYDROCHLORIDE
  2. RHOFADE [Suspect]
     Active Substance: OXYMETAZOLINE HYDROCHLORIDE
     Indication: ROSACEA
     Dosage: ?          QUANTITY:1 PEA-SIZED;?
     Route: 061
     Dates: start: 20201112, end: 20201125
  3. FLONASE [Concomitant]
     Active Substance: FLUTICASONE PROPIONATE

REACTIONS (5)
  - Swelling [None]
  - Condition aggravated [None]
  - Tenderness [None]
  - Burning sensation [None]
  - Skin exfoliation [None]

NARRATIVE: CASE EVENT DATE: 20201115
